FAERS Safety Report 15244790 (Version 1)
Quarter: 2018Q3

REPORT INFORMATION
  Report Type: Report from Study
  Country: US (occurrence: US)
  Receive Date: 20180806
  Receipt Date: 20180806
  Transmission Date: 20181010
  Serious: Yes (Death, Other)
  Sender: FDA-Public Use
  Company Number: US-SHIRE-US201829960

PATIENT
  Age: 69 Year
  Sex: Female

DRUGS (2)
  1. GATTEX [Suspect]
     Active Substance: TEDUGLUTIDE\WATER
     Indication: SHORT-BOWEL SYNDROME
     Dosage: 3.062 MG, 1X/DAY:QD (DAILY)
     Route: 058
     Dates: start: 20170523, end: 20180709
  2. GATTEX [Suspect]
     Active Substance: TEDUGLUTIDE\WATER
     Dosage: 0.306 ML, UNK
     Route: 065
     Dates: start: 20170613

REACTIONS (1)
  - Death [Fatal]

NARRATIVE: CASE EVENT DATE: 20180709
